FAERS Safety Report 6337027-9 (Version None)
Quarter: 2009Q3

REPORT INFORMATION
  Report Type: 
  Country: None (occurrence: None)
  Receive Date: 20090901
  Receipt Date: 20090826
  Transmission Date: 20100115
  Serious: Yes (Hospitalization)
  Sender: FDA-Public Use
  Company Number: GB-WYE-H09492709

PATIENT
  Sex: Male
  Weight: 68.05 kg

DRUGS (11)
  1. CMC-544 [Suspect]
     Indication: B-CELL LYMPHOMA
     Route: 042
     Dates: start: 20090414, end: 20090519
  2. ACYCLOVIR [Concomitant]
     Indication: PROPHYLAXIS
     Route: 048
     Dates: start: 20090422
  3. ACYCLOVIR [Concomitant]
     Indication: ANTIVIRAL TREATMENT
  4. MORPHINE [Concomitant]
     Indication: ANALGESIA
     Route: 048
     Dates: start: 20090424
  5. NULYTELY [Concomitant]
     Indication: LAXATIVE SUPPORTIVE CARE
     Dosage: 2 PACKETS
     Route: 048
     Dates: start: 20090422
  6. ORAMORPH SR [Concomitant]
     Indication: ANALGESIA
     Dosage: 15 MG AS NEEDED
     Route: 048
     Dates: start: 20080101
  7. CYCLIZINE [Concomitant]
     Indication: NAUSEA
     Dosage: 50MG AS NEEDED
     Dates: start: 20090422
  8. CYCLIZINE [Concomitant]
     Indication: VOMITING
  9. RITUXIMAB [Concomitant]
     Indication: B-CELL LYMPHOMA
     Route: 042
     Dates: start: 20090414, end: 20090519
  10. LANSOPRAZOLE [Concomitant]
     Indication: GASTRIC ULCER
     Route: 048
     Dates: start: 20090422
  11. LANSOPRAZOLE [Concomitant]
     Indication: DYSPEPSIA

REACTIONS (1)
  - UPPER GASTROINTESTINAL HAEMORRHAGE [None]
